FAERS Safety Report 26087790 (Version 1)
Quarter: 2025Q4

REPORT INFORMATION
  Report Type: Spontaneous
  Country: EU (occurrence: EU)
  Receive Date: 20251125
  Receipt Date: 20251125
  Transmission Date: 20260117
  Serious: Yes (Other)
  Sender: PFIZER
  Company Number: None

PATIENT
  Age: 37 Year
  Sex: Male
  Weight: 44 kg

DRUGS (3)
  1. RUXIENCE [Suspect]
     Active Substance: RITUXIMAB-PVVR
     Indication: Muscular weakness
     Dosage: 500 MG, EVERY 3 WEEKS
     Route: 042
     Dates: start: 20251009, end: 20251030
  2. RUXIENCE [Suspect]
     Active Substance: RITUXIMAB-PVVR
     Dosage: 500 MG, EVERY 3 WEEKS
     Route: 042
     Dates: start: 20251009, end: 20251030
  3. ROZANOLIXIZUMAB [Suspect]
     Active Substance: ROZANOLIXIZUMAB
     Indication: Muscular weakness
     Dosage: 280 MG, WEEKLY (140 MG/ML, SOLUTION INJECTABLE)
     Route: 058
     Dates: start: 20251013, end: 20251027

REACTIONS (1)
  - Lung disorder [Recovering/Resolving]

NARRATIVE: CASE EVENT DATE: 20251102
